FAERS Safety Report 24435844 (Version 2)
Quarter: 2024Q4

REPORT INFORMATION
  Report Type: Spontaneous
  Country: EG (occurrence: EG)
  Receive Date: 20241015
  Receipt Date: 20241023
  Transmission Date: 20250114
  Serious: Yes (Other)
  Sender: NOVO NORDISK
  Company Number: EG-NOVOPROD-1297885

PATIENT
  Age: 567 Month
  Sex: Female

DRUGS (17)
  1. INSULIN HUMAN [Suspect]
     Active Substance: INSULIN HUMAN
     Indication: Diabetes mellitus
     Dosage: 70 IU, QD (40 U MORNING /30 U NIGHT)
     Route: 058
  2. COLOVERIN [Concomitant]
     Indication: Prophylaxis
     Dosage: 1 TAB/DAY
     Route: 048
  3. ASPIRIN [Concomitant]
     Active Substance: ASPIRIN
     Indication: Prophylaxis
     Dosage: 1 TAB/DAY
     Route: 048
  4. RELAXON [CHLORZOXAZONE;PARACETAMOL] [Concomitant]
     Indication: Muscle relaxant therapy
     Dosage: 1 TAB/DAY
     Route: 048
  5. LEVOTHYROXINE [Concomitant]
     Active Substance: LEVOTHYROXINE
     Indication: Thyroid hormone replacement therapy
     Dosage: 1 TAB/DAY
     Route: 048
     Dates: start: 20211010
  6. LEVOTHYROXINE [Concomitant]
     Active Substance: LEVOTHYROXINE
     Dosage: EVERY 4 DAYS/1 TAB OF 50 MG CONCENTRATION
     Route: 048
  7. LEVOTHYROXINE [Concomitant]
     Active Substance: LEVOTHYROXINE
     Dosage: EVERY 3 DAYS/1 TAB OF 100 MG CONCENTRATION
     Route: 048
  8. LEVOTHYROXINE [Concomitant]
     Active Substance: LEVOTHYROXINE
     Dosage: EVERY 3 DAYS/1 TAB OF 100 MG CONCENTRATION
     Route: 048
  9. HYDROCHLOROTHIAZIDE\VALSARTAN [Concomitant]
     Active Substance: HYDROCHLOROTHIAZIDE\VALSARTAN
     Indication: Hypertension
     Dosage: 1 TAB/ DAY AT 9 AM MORNING
     Route: 048
  10. EGYPRO [Concomitant]
     Indication: Hypertension
     Dosage: UNK
  11. EXFORGE HCT [Concomitant]
     Active Substance: AMLODIPINE BESYLATE\HYDROCHLOROTHIAZIDE\VALSARTAN
     Indication: Hypertension
     Dosage: OF 1 TAB/ DAY AT 9 AM MORNING
     Route: 048
     Dates: start: 202409
  12. BISOPROLOL FUMARATE [Concomitant]
     Active Substance: BISOPROLOL FUMARATE
     Indication: Hypertension
     Dosage: UNK
  13. GAPTIN [Concomitant]
     Indication: Prophylaxis
     Dosage: 1 TAB/DAY
     Route: 048
  14. NITROMACK [Concomitant]
     Indication: Cardiomegaly
     Dosage: 2 TAB/DAY
     Route: 048
  15. SALBOVENT [Concomitant]
     Indication: Prophylaxis
     Dosage: 1 TAB / DAY BEFORE MEAL AT MORNING
     Route: 048
  16. ACETAMINOPHEN [Concomitant]
     Active Substance: ACETAMINOPHEN
     Indication: Analgesic therapy
     Dosage: HALF OF TAB /DAY
     Route: 048
  17. DOLIPRANE [Concomitant]
     Active Substance: ACETAMINOPHEN
     Indication: Analgesic therapy

REACTIONS (11)
  - Cardiomegaly [Not Recovered/Not Resolved]
  - Benign neoplasm [Unknown]
  - Neuropathy peripheral [Unknown]
  - Intervertebral disc degeneration [Not Recovered/Not Resolved]
  - Anaemia [Not Recovered/Not Resolved]
  - Sciatica [Recovered/Resolved]
  - Thyroid function test abnormal [Unknown]
  - Injection site mass [Recovered/Resolved]
  - Injection site swelling [Recovered/Resolved]
  - Injection site discolouration [Recovered/Resolved]
  - Wrong technique in product usage process [Unknown]

NARRATIVE: CASE EVENT DATE: 20240801
